FAERS Safety Report 5390602-0 (Version None)
Quarter: 2007Q3

REPORT INFORMATION
  Report Type: 
  Country: None (occurrence: None)
  Receive Date: 20070718
  Receipt Date: 20070123
  Transmission Date: 20080115
  Serious: No
  Sender: FDA-Public Use
  Company Number: US-KINGPHARMUSA00001-K200700071

PATIENT

DRUGS (1)
  1. LEVOXYL [Suspect]

REACTIONS (4)
  - CONSTIPATION [None]
  - DEPRESSION [None]
  - FATIGUE [None]
  - INSOMNIA [None]
